FAERS Safety Report 9506841 (Version 1)
Quarter: 2013Q3

REPORT INFORMATION
  Report Type: Spontaneous
  Country: US (occurrence: None)
  Receive Date: 20130904
  Receipt Date: 20130904
  Transmission Date: 20140515
  Serious: Yes (Other)
  Sender: FDA-Public Use
  Company Number: 2013/169

PATIENT
  Age: 41 Year
  Sex: Female
  Weight: 77 kg

DRUGS (5)
  1. TERBINAFINE [Suspect]
     Indication: ONYCHOMYCOSIS
     Route: 048
     Dates: start: 20130719, end: 20130729
  2. FERROUS FUMARATE (NO PREF.NAME) [Concomitant]
  3. LEVONORGASTRAL (MIRENA) [Concomitant]
  4. TETRACYCLINE (NO PREF. NAME) [Concomitant]
  5. TRIMETHOPRIM (NO PREF. NAME) [Concomitant]

REACTIONS (2)
  - Haematochezia [None]
  - Anal haemorrhage [None]
